FAERS Safety Report 14632419 (Version 1)
Quarter: 2018Q1

REPORT INFORMATION
  Report Type: Spontaneous
  Country: GB (occurrence: GB)
  Receive Date: 20180313
  Receipt Date: 20180313
  Transmission Date: 20180509
  Serious: Yes (Other)
  Sender: FDA-Public Use
  Company Number: GB-TEVA-2018-GB-867391

PATIENT
  Age: 45 Year
  Sex: Female
  Weight: 55.7 kg

DRUGS (3)
  1. TRIMETHOPRIM TABLETS 100 MG [Suspect]
     Active Substance: TRIMETHOPRIM
     Indication: URINARY TRACT INFECTION
     Dosage: 2 X DAILY FOR 5 DAYS.
     Route: 048
  2. IBUPROFEN. [Concomitant]
     Active Substance: IBUPROFEN
  3. PARACETAMOL DC [Concomitant]

REACTIONS (2)
  - Abdominal pain [Unknown]
  - Muscular weakness [Recovered/Resolved with Sequelae]
